FAERS Safety Report 17701502 (Version 7)
Quarter: 2020Q4

REPORT INFORMATION
  Report Type: Report from Study
  Country: US (occurrence: US)
  Receive Date: 20200423
  Receipt Date: 20201204
  Transmission Date: 20210113
  Serious: Yes (Other)
  Sender: FDA-Public Use
  Company Number: NVSC2020US108110

PATIENT
  Sex: Female

DRUGS (2)
  1. MEKINIST [Suspect]
     Active Substance: TRAMETINIB DIMETHYL SULFOXIDE
     Dosage: 2 MG, QD
     Route: 048
  2. MEKINIST [Suspect]
     Active Substance: TRAMETINIB DIMETHYL SULFOXIDE
     Indication: PRODUCT USED FOR UNKNOWN INDICATION
     Dosage: UNK
     Route: 065

REACTIONS (9)
  - Vomiting [Unknown]
  - Chills [Unknown]
  - Illness [Unknown]
  - Adverse reaction [Unknown]
  - Rash [Unknown]
  - Coronavirus infection [Unknown]
  - Drug intolerance [Unknown]
  - Product dose omission issue [Unknown]
  - Diarrhoea [Unknown]
